FAERS Safety Report 7437259-2 (Version None)
Quarter: 2011Q2

REPORT INFORMATION
  Report Type: 
  Country: None (occurrence: None)
  Receive Date: 20110426
  Receipt Date: 20110421
  Transmission Date: 20111010
  Serious: Yes (Life-Threatening, Other)
  Sender: FDA-Public Use
  Company Number: FR-BRISTOL-MYERS SQUIBB COMPANY-15691421

PATIENT
  Age: 99 Year
  Sex: Female

DRUGS (11)
  1. IMOVANE [Concomitant]
  2. ACETAMINOPHEN [Suspect]
     Indication: URINARY TRACT INFECTION
     Dates: end: 20110221
  3. BACTRIM [Interacting]
     Indication: URINARY TRACT INFECTION
     Dosage: 1 DF = 2 UNIT NOS
     Dates: start: 20110217, end: 20110221
  4. HYDROCORTISONE [Concomitant]
  5. NEXIUM [Concomitant]
  6. NITRODERM [Concomitant]
  7. VASTAREL [Concomitant]
  8. COUMADIN [Interacting]
     Indication: CORONARY ARTERY INSUFFICIENCY
     Dosage: 24JAN11:2MG/D 31JAN11:3.5MG/D 9FEB11:3MG/D
     Route: 048
     Dates: end: 20110221
  9. LEVOTHYROX [Concomitant]
  10. CARDENSIEL [Concomitant]
  11. TRIATEC [Concomitant]

REACTIONS (5)
  - INTERNATIONAL NORMALISED RATIO INCREASED [None]
  - MELAENA [None]
  - DRUG INTERACTION [None]
  - ANAEMIA [None]
  - URINARY TRACT INFECTION [None]
